FAERS Safety Report 5533489-5 (Version None)
Quarter: 2007Q4

REPORT INFORMATION
  Report Type: 
  Country: None (occurrence: None)
  Receive Date: 20071204
  Receipt Date: 20071123
  Transmission Date: 20080405
  Serious: Yes (Other)
  Sender: FDA-Public Use
  Company Number: GR-PFIZER INC-2007098750

PATIENT
  Age: 69 Year
  Sex: Female

DRUGS (2)
  1. MEDROL [Suspect]
     Indication: CONTUSION
     Dosage: DAILY DOSE:16MG
     Route: 048
  2. MEDROL [Suspect]
     Indication: INFECTION

REACTIONS (1)
  - TACHYCARDIA [None]
